FAERS Safety Report 6154046-6 (Version None)
Quarter: 2009Q2

REPORT INFORMATION
  Report Type: 
  Country: None (occurrence: None)
  Receive Date: 20090414
  Receipt Date: 20090407
  Transmission Date: 20091009
  Serious: Yes (Other)
  Sender: FDA-Public Use
  Company Number: HQWYE382111AUG06

PATIENT
  Age: 56 Year
  Sex: Male

DRUGS (13)
  1. AMIODARONE HCL [Suspect]
     Indication: SUPRAVENTRICULAR TACHYCARDIA
     Route: 042
  2. SIMVASTATIN [Interacting]
     Route: 065
  3. SIMVASTATIN [Interacting]
  4. AMIODARONE HCL [Interacting]
     Route: 048
  5. AMIODARONE HCL [Interacting]
     Route: 048
  6. AMIODARONE HCL [Interacting]
     Route: 048
  7. AMLODIPINE [Concomitant]
     Route: 065
  8. CEFTRIAXONE [Concomitant]
     Route: 065
  9. FERROUS SULFATE TAB [Concomitant]
     Route: 065
  10. LANSOPRAZOLE [Concomitant]
     Route: 065
  11. ADENOSINE [Concomitant]
     Dosage: NOT PROVIDED
     Route: 042
  12. CLARITHROMYCIN [Interacting]
     Route: 048
  13. ACETYLSALICYLIC ACID SRT [Concomitant]
     Route: 065

REACTIONS (4)
  - BLOOD CREATINE PHOSPHOKINASE INCREASED [None]
  - DRUG INTERACTION [None]
  - LIVER FUNCTION TEST ABNORMAL [None]
  - MYOSITIS [None]
